FAERS Safety Report 7025111-6 (Version None)
Quarter: 2010Q3

REPORT INFORMATION
  Report Type: 
  Country: None (occurrence: None)
  Receive Date: 20100929
  Receipt Date: 20100916
  Transmission Date: 20110219
  Serious: Yes (Hospitalization)
  Sender: FDA-Public Use
  Company Number: DSJ-2010-17157

PATIENT
  Age: 80 Year
  Sex: Female

DRUGS (2)
  1. AMLODIPINE BESYLATE AND OLMESARTAN MEDOXOMIL [Suspect]
     Indication: HYPERTENSION
     Dosage: 40/10 MG (1 IN 1 D), PER ORAL, 40/5 MG (1 IN 1 D), PER ORAL
     Route: 048
     Dates: start: 20080101, end: 20090901
  2. ATENOLOL [Concomitant]

REACTIONS (2)
  - HYPOTENSION [None]
  - VASCULAR GRAFT [None]
